FAERS Safety Report 9501844 (Version 1)
Quarter: 2013Q3

REPORT INFORMATION
  Report Type: Spontaneous
  Country: US (occurrence: US)
  Receive Date: 20130905
  Receipt Date: 20130905
  Transmission Date: 20140515
  Serious: No
  Sender: FDA-Public Use
  Company Number: US-009507513-1309USA000762

PATIENT
  Sex: Male

DRUGS (3)
  1. REBETOL [Suspect]
     Route: 048
  2. VICTRELIS [Suspect]
     Dosage: 800 MG, TID; 1 UNIT OF USE BOTTLE OF 12
     Route: 048
     Dates: start: 20130816
  3. INTERFERON (UNSPECIFIED) [Suspect]

REACTIONS (3)
  - Laboratory test abnormal [Unknown]
  - Product quality issue [Unknown]
  - Drug administration error [Unknown]
